FAERS Safety Report 6093796-7 (Version None)
Quarter: 2009Q1

REPORT INFORMATION
  Report Type: 
  Country: None (occurrence: None)
  Receive Date: 20090223
  Receipt Date: 20090223
  Transmission Date: 20090719
  Serious: Yes (Death)
  Sender: FDA-Public Use
  Company Number: None

PATIENT
  Age: 39 Year
  Sex: Female
  Weight: 96.6162 kg

DRUGS (2)
  1. METHADONE HCL [Suspect]
     Indication: PAIN
     Dosage: 10 MG 2 DAILY, 2 BED TIM PO
     Route: 048
     Dates: start: 20080312, end: 20080315
  2. SEROQUEL [Suspect]
     Indication: BIPOLAR DISORDER
     Dosage: 1,500 MG BED TIME PO
     Route: 048
     Dates: start: 20020201, end: 20080315

REACTIONS (1)
  - DEATH [None]
